FAERS Safety Report 17947352 (Version 1)
Quarter: 2020Q2

REPORT INFORMATION
  Report Type: Spontaneous
  Country: US (occurrence: US)
  Receive Date: 20200625
  Receipt Date: 20200625
  Transmission Date: 20200714
  Serious: Yes (Other)
  Sender: FDA-Public Use
  Company Number: None

PATIENT
  Age: 63 Year
  Sex: Female
  Weight: 112 kg

DRUGS (10)
  1. JARDIANCE 10 MG DAILY [Concomitant]
  2. ESTRADIOL 0.01% VAGINAL CREAM [Concomitant]
  3. INSULIN DEGLUDEC 160 UNITS DAILY [Concomitant]
  4. SERTRALINE 150 MG DAILY [Concomitant]
  5. SIMVASTATIN 20 MG DAILY [Concomitant]
  6. VICTOZA [Suspect]
     Active Substance: LIRAGLUTIDE
     Indication: TYPE 2 DIABETES MELLITUS
     Route: 058
     Dates: start: 20200505, end: 20200608
  7. LEVOTHYROXINE 125 MCG DAILY [Concomitant]
  8. METFORMIN 1000 MG TWICE DAILY [Concomitant]
  9. LOSARTAN 25 MG DAILY [Concomitant]
  10. PANTOPRAZOLE 40 MG DAILY [Concomitant]

REACTIONS (11)
  - Palpitations [None]
  - Hyperhidrosis [None]
  - Night sweats [None]
  - Depression [None]
  - Feeling of despair [None]
  - Affect lability [None]
  - Anxiety [None]
  - Decreased appetite [None]
  - Morbid thoughts [None]
  - Dyspnoea [None]
  - Nasal congestion [None]

NARRATIVE: CASE EVENT DATE: 20200608
